FAERS Safety Report 7016717-9 (Version None)
Quarter: 2010Q3

REPORT INFORMATION
  Report Type: 
  Country: None (occurrence: None)
  Receive Date: 20100927
  Receipt Date: 20100916
  Transmission Date: 20110219
  Serious: Yes (Death)
  Sender: FDA-Public Use
  Company Number: BH-ROCHE-728163

PATIENT
  Age: 30 Year
  Sex: Male

DRUGS (1)
  1. TAMIFLU [Suspect]
     Indication: PROPHYLAXIS
     Dosage: FREQUENCY REPORTED AS TWICE.
     Route: 048
     Dates: start: 20100908, end: 20100910

REACTIONS (1)
  - DEATH [None]
